FAERS Safety Report 7867239-4 (Version None)
Quarter: 2011Q4

REPORT INFORMATION
  Report Type: 
  Country: None (occurrence: None)
  Receive Date: 20111028
  Receipt Date: 20111025
  Transmission Date: 20120403
  Serious: Yes (Other)
  Sender: FDA-Public Use
  Company Number: DE-GLAXOSMITHKLINE-D0073167A

PATIENT
  Age: 62 Year
  Sex: Male

DRUGS (2)
  1. AZILECT [Suspect]
     Dosage: 1MG PER DAY
     Route: 065
  2. REQUIP [Suspect]
     Indication: PARKINSON'S DISEASE
     Dosage: 16MG PER DAY
     Route: 048

REACTIONS (4)
  - IMPATIENCE [None]
  - SLEEP ATTACKS [None]
  - AGGRESSION [None]
  - RESTLESSNESS [None]
